FAERS Safety Report 10236053 (Version 1)
Quarter: 2014Q2

REPORT INFORMATION
  Report Type: Other
  Country: US (occurrence: US)
  Receive Date: 20140613
  Receipt Date: 20140613
  Transmission Date: 20141212
  Serious: Yes (Hospitalization, Other)
  Sender: FDA-Public Use
  Company Number: US-SHIRE-US201402908

PATIENT
  Sex: Male
  Weight: 34.92 kg

DRUGS (1)
  1. ELAPRASE [Suspect]
     Indication: PRODUCT USED FOR UNKNOWN INDICATION
     Dosage: 18 MG, 1X/WEEK
     Route: 041
     Dates: start: 20110511

REACTIONS (2)
  - Cardiac arrest [Unknown]
  - Surgery [Unknown]
